FAERS Safety Report 4647640-2 (Version None)
Quarter: 2005Q2

REPORT INFORMATION
  Report Type: 
  Country: None (occurrence: None)
  Receive Date: 20050426
  Receipt Date: 20050414
  Transmission Date: 20051028
  Serious: Yes (Life-Threatening, Hospitalization)
  Sender: FDA-Public Use
  Company Number: 2005-127450-NL

PATIENT
  Age: 42 Year
  Sex: Female
  Weight: 65.8 kg

DRUGS (1)
  1. NUVARING [Suspect]
     Indication: CONTRACEPTION
     Dosage: VAGINAL, INSERTED VAGINALLY FOR THREE WEEKS AND REMOVED FOR ONE WEEK
     Route: 067

REACTIONS (1)
  - TOXIC SHOCK SYNDROME [None]
